FAERS Safety Report 13941200 (Version 1)
Quarter: 2017Q3

REPORT INFORMATION
  Report Type: Report from Study
  Country: JP (occurrence: JP)
  Receive Date: 20170906
  Receipt Date: 20170906
  Transmission Date: 20171127
  Serious: Yes (Hospitalization)
  Sender: FDA-Public Use
  Company Number: JP-ACTELION-A-CH2017-159073

PATIENT
  Age: 20 Year
  Sex: Female

DRUGS (7)
  1. TAKEPRON [Concomitant]
     Active Substance: LANSOPRAZOLE
  2. VENTAVIS [Suspect]
     Active Substance: ILOPROST
     Dosage: 30 ?G, QD
     Route: 055
     Dates: start: 20160704, end: 20160726
  3. VENTAVIS [Suspect]
     Active Substance: ILOPROST
     Indication: PULMONARY ARTERIAL HYPERTENSION
     Dosage: 15 ?G, QD
     Route: 055
     Dates: start: 20160609, end: 20160703
  4. ADCIRCA [Suspect]
     Active Substance: TADALAFIL
     Indication: PULMONARY ARTERIAL HYPERTENSION
     Dosage: 40 MG, QD
     Route: 048
     Dates: start: 20160426
  5. OPSUMIT [Suspect]
     Active Substance: MACITENTAN
     Indication: PULMONARY ARTERIAL HYPERTENSION
     Dosage: 10 MG, QD
     Route: 048
     Dates: start: 20160609
  6. VENTAVIS [Suspect]
     Active Substance: ILOPROST
     Dosage: 45 ?G, QD
     Route: 055
     Dates: start: 20160727
  7. DIART [Concomitant]
     Active Substance: AZOSEMIDE

REACTIONS (7)
  - Headache [Recovered/Resolved]
  - Palpitations [Recovered/Resolved]
  - Concomitant disease aggravated [Recovered/Resolved]
  - Pancreatitis acute [Recovered/Resolved]
  - Anaemia [Recovered/Resolved]
  - Flushing [Recovered/Resolved]
  - Dysmenorrhoea [Recovered/Resolved]

NARRATIVE: CASE EVENT DATE: 20160621
